FAERS Safety Report 12159960 (Version 7)
Quarter: 2019Q2

REPORT INFORMATION
  Report Type: Spontaneous
  Country: TR (occurrence: TR)
  Receive Date: 20160308
  Receipt Date: 20190401
  Transmission Date: 20190711
  Serious: Yes (Other)
  Sender: FDA-Public Use
  Company Number: PHHY2016TR029387

PATIENT
  Age: 45 Year
  Sex: Male

DRUGS (3)
  1. DICLOFENAC [Suspect]
     Active Substance: DICLOFENAC
     Indication: HEADACHE
     Dosage: 50 MG, QD
     Route: 065
  2. PANTOPRAZOLE [Interacting]
     Active Substance: PANTOPRAZOLE
     Indication: DYSPEPSIA
     Dosage: 40 MG, QD
     Route: 065
  3. DICLOFENAC [Interacting]
     Active Substance: DICLOFENAC
     Indication: PAIN
     Dosage: 2 DF, UNK
     Route: 065

REACTIONS (5)
  - Fatigue [Recovered/Resolved]
  - Myalgia [Recovered/Resolved]
  - Rhabdomyolysis [Recovered/Resolved]
  - Pain [Recovered/Resolved]
  - Drug interaction [Recovered/Resolved]
